FAERS Safety Report 6834999-0 (Version None)
Quarter: 2010Q3

REPORT INFORMATION
  Report Type: 
  Country: None (occurrence: None)
  Receive Date: 20100713
  Receipt Date: 20100602
  Transmission Date: 20110219
  Serious: Yes (Other)
  Sender: FDA-Public Use
  Company Number: US-BIOGENIDEC-2010BI014924

PATIENT
  Age: 38 Year
  Sex: Female

DRUGS (3)
  1. AVONEX [Suspect]
     Indication: MULTIPLE SCLEROSIS
     Route: 030
     Dates: start: 19980101, end: 20041101
  2. AVONEX [Suspect]
     Dates: start: 20100219
  3. AVONEX [Suspect]
     Dates: start: 20050823, end: 20070201

REACTIONS (1)
  - ABORTION SPONTANEOUS [None]
